FAERS Safety Report 8025204-0 (Version None)
Quarter: 2012Q1

REPORT INFORMATION
  Report Type: 
  Country: None (occurrence: None)
  Receive Date: 20120105
  Receipt Date: 20111228
  Transmission Date: 20120608
  Serious: Yes (Hospitalization)
  Sender: FDA-Public Use
  Company Number: GB-GLAXOSMITHKLINE-B0771780A

PATIENT
  Age: 67 Year
  Sex: Male

DRUGS (2)
  1. RANITIDINE [Suspect]
     Indication: CHEST PAIN
     Dosage: 300MG PER DAY
     Dates: start: 20111208, end: 20111210
  2. DIGOXIN [Concomitant]
     Dosage: 187.5MCG PER DAY

REACTIONS (5)
  - DIARRHOEA [None]
  - BRADYCARDIA [None]
  - DYSPNOEA [None]
  - FLATULENCE [None]
  - CONFUSIONAL STATE [None]
